FAERS Safety Report 13374292 (Version 1)
Quarter: 2017Q1

REPORT INFORMATION
  Report Type: Report from Study
  Country: US (occurrence: US)
  Receive Date: 20170327
  Receipt Date: 20170327
  Transmission Date: 20170429
  Serious: Yes (Hospitalization)
  Sender: FDA-Public Use
  Company Number: US-JNJFOC-20170218416

PATIENT
  Age: 54 Year
  Sex: Male
  Weight: 135.17 kg

DRUGS (1)
  1. USTEKINUMAB [Suspect]
     Active Substance: USTEKINUMAB
     Indication: PSORIASIS
     Route: 058
     Dates: start: 201606

REACTIONS (4)
  - Acute respiratory failure [Recovered/Resolved]
  - Nephrogenic diabetes insipidus [Recovered/Resolved]
  - Sepsis [Recovered/Resolved]
  - Peritonsillar abscess [Recovered/Resolved]

NARRATIVE: CASE EVENT DATE: 20161004
